FAERS Safety Report 7950363-5 (Version None)
Quarter: 2011Q4

REPORT INFORMATION
  Report Type: 
  Country: None (occurrence: None)
  Receive Date: 20111130
  Receipt Date: 20111121
  Transmission Date: 20120403
  Serious: Yes (Hospitalization)
  Sender: FDA-Public Use
  Company Number: US-BAYER-2011-036215

PATIENT
  Age: 48 Year
  Sex: Female
  Weight: 120 kg

DRUGS (12)
  1. XANAX [Concomitant]
     Indication: ANXIETY
     Dosage: UNK
     Dates: start: 19970101
  2. PROVIGIL [Concomitant]
     Indication: DEPRESSION
     Dosage: UNK
     Dates: start: 20010101
  3. YASMIN [Suspect]
     Indication: CONTRACEPTION
     Dosage: UNK
     Dates: start: 20030723, end: 20061001
  4. EXCEDRIN (MIGRAINE) [Concomitant]
     Indication: OROPHARYNGEAL PAIN
  5. EFFEXOR XR [Concomitant]
     Indication: DEPRESSION
     Dosage: 150 MG, UNK
     Dates: start: 20010101
  6. ZITHROMAX [Concomitant]
     Dosage: UNK
     Dates: start: 20060601
  7. FLUCONAZOLE [Concomitant]
     Dosage: 100 MG, UNK
  8. ALPRAZOLAM [Concomitant]
     Indication: ANXIETY
     Dosage: 0.25 MG, UNK
     Dates: start: 20060301
  9. AMBIEN [Concomitant]
     Dosage: 10 MG, UNK
  10. MOTRIN [Concomitant]
     Dosage: UNK
     Dates: start: 20000101
  11. YASMIN [Suspect]
     Indication: MOOD ALTERED
  12. EXCEDRIN (MIGRAINE) [Concomitant]
     Indication: HEADACHE
     Dosage: UNK UNK, BID
     Dates: start: 19760101

REACTIONS (13)
  - DEEP VEIN THROMBOSIS [None]
  - ANXIETY [None]
  - DYSPNOEA [None]
  - GENERAL PHYSICAL HEALTH DETERIORATION [None]
  - PERIPHERAL COLDNESS [None]
  - PERIPHERAL VASCULAR DISORDER [None]
  - THROMBOSIS [None]
  - PAIN [None]
  - CHOLELITHIASIS [None]
  - OEDEMA PERIPHERAL [None]
  - MOBILITY DECREASED [None]
  - EMOTIONAL DISTRESS [None]
  - PULMONARY EMBOLISM [None]
